FAERS Safety Report 19375346 (Version 6)
Quarter: 2023Q2

REPORT INFORMATION
  Report Type: Report from Study
  Country: CA (occurrence: CA)
  Receive Date: 20210604
  Receipt Date: 20230614
  Transmission Date: 20230722
  Serious: Yes (Hospitalization, Other)
  Sender: FDA-Public Use
  Company Number: PHHY2018CA164446

PATIENT
  Age: 30 Year
  Sex: Female

DRUGS (17)
  1. XOLAIR [Suspect]
     Active Substance: OMALIZUMAB
     Indication: Chronic spontaneous urticaria
     Dosage: 300 MG, EVERY 4 WEEKS
     Route: 058
     Dates: start: 20181019
  2. XOLAIR [Suspect]
     Active Substance: OMALIZUMAB
     Dosage: 300 MG, EVERY 4 WEEKS
     Route: 058
  3. XOLAIR [Suspect]
     Active Substance: OMALIZUMAB
     Dosage: 300 MG, EVERY 4 WEEKS
     Route: 058
     Dates: start: 20181224
  4. XOLAIR [Suspect]
     Active Substance: OMALIZUMAB
     Dosage: 300 MG, EVERY 4 WEEKS
     Route: 058
     Dates: start: 20190725
  5. XOLAIR [Suspect]
     Active Substance: OMALIZUMAB
     Dosage: 300 MG, EVERY 4 WEEKS
     Route: 058
     Dates: start: 20190917
  6. XOLAIR [Suspect]
     Active Substance: OMALIZUMAB
     Dosage: 300 MG, EVERY 4 WEEKS
     Route: 058
     Dates: start: 20200305
  7. XOLAIR [Suspect]
     Active Substance: OMALIZUMAB
     Dosage: 300 MG, EVERY 4 WEEKS
     Route: 058
  8. AMOXICILLIN [Suspect]
     Active Substance: AMOXICILLIN
     Indication: Product used for unknown indication
     Dosage: UNK
     Route: 065
  9. CODEINE PHOSPHATE [Suspect]
     Active Substance: CODEINE PHOSPHATE
     Indication: Product used for unknown indication
     Dosage: UNK
     Route: 065
  10. BENADRYL [Concomitant]
     Active Substance: DIPHENHYDRAMINE HYDROCHLORIDE
     Indication: Urticaria
     Dosage: 1 DOSAGE FORM, PRN
     Route: 048
     Dates: start: 2016
  11. ZANTAC [Concomitant]
     Active Substance: RANITIDINE HYDROCHLORIDE
     Indication: Urticaria
     Dosage: 1 DOSAGE FORM, BID
     Route: 048
     Dates: start: 20180710
  12. IRON [Concomitant]
     Active Substance: IRON
     Indication: Mineral supplementation
     Dosage: 1 DOSAGE FORM, QD
     Route: 048
  13. PANTOPRAZOLE SODIUM [Concomitant]
     Active Substance: PANTOPRAZOLE SODIUM
     Indication: Chronic spontaneous urticaria
     Dosage: 1 DOSAGE FORM, QD
     Route: 048
     Dates: start: 201903
  14. RUPATADINE FUMARATE [Concomitant]
     Active Substance: RUPATADINE FUMARATE
     Indication: Urticaria
     Dosage: 1 DOSAGE FORM, PRN (10 MG)
     Route: 048
     Dates: start: 20180710, end: 201810
  15. RUPATADINE FUMARATE [Concomitant]
     Active Substance: RUPATADINE FUMARATE
     Indication: Chronic spontaneous urticaria
     Dosage: 1 DOSAGE FORM, QD (STRENGTH WAS 10 MG DAILY AND EXTRA PRN)
     Route: 048
     Dates: start: 202204
  16. RUPATADINE FUMARATE [Concomitant]
     Active Substance: RUPATADINE FUMARATE
     Indication: Productive cough
     Dosage: UNK (DOSE INCREASED)
     Route: 065
  17. CONCERTA [Concomitant]
     Active Substance: METHYLPHENIDATE HYDROCHLORIDE
     Indication: Product used for unknown indication
     Dosage: UNK
     Route: 048
     Dates: start: 20230126

REACTIONS (45)
  - Nervous system disorder [Unknown]
  - Cystitis [Unknown]
  - Seizure [Unknown]
  - Thrombosis [Unknown]
  - Angioedema [Unknown]
  - Cellulitis [Unknown]
  - Intentional self-injury [Unknown]
  - Anaphylactic reaction [Unknown]
  - Discomfort [Unknown]
  - Skin discolouration [Unknown]
  - Rash macular [Unknown]
  - Swelling [Unknown]
  - Temperature intolerance [Unknown]
  - Attention deficit hyperactivity disorder [Unknown]
  - Anxiety [Unknown]
  - Malaise [Unknown]
  - Body temperature decreased [Unknown]
  - Hypophagia [Unknown]
  - Wound [Unknown]
  - Epistaxis [Unknown]
  - Dizziness [Unknown]
  - Nasal obstruction [Unknown]
  - Pain [Unknown]
  - Swelling face [Unknown]
  - Vascular pain [Unknown]
  - Feeling abnormal [Unknown]
  - Haemoptysis [Unknown]
  - Impetigo [Unknown]
  - Skin lesion [Unknown]
  - Rhinorrhoea [Unknown]
  - Cough [Unknown]
  - Chills [Unknown]
  - Blister [Unknown]
  - Scratch [Unknown]
  - Stress [Unknown]
  - Skin haemorrhage [Unknown]
  - Poor quality sleep [Unknown]
  - Obsessive-compulsive disorder [Unknown]
  - Urticaria [Not Recovered/Not Resolved]
  - Pruritus [Unknown]
  - Pyrexia [Unknown]
  - Drug hypersensitivity [Unknown]
  - Therapeutic response shortened [Unknown]
  - Inappropriate schedule of product administration [Unknown]
  - Product dose omission issue [Unknown]

NARRATIVE: CASE EVENT DATE: 20181019
